FAERS Safety Report 25487124 (Version 1)
Quarter: 2025Q2

REPORT INFORMATION
  Report Type: Spontaneous
  Country: IT (occurrence: IT)
  Receive Date: 20250627
  Receipt Date: 20250627
  Transmission Date: 20250716
  Serious: Yes (Other)
  Sender: NOVARTIS
  Company Number: IT-002147023-NVSC2023IT229565

PATIENT
  Age: 49 Year
  Sex: Female

DRUGS (7)
  1. CYCLOSPORINE [Suspect]
     Active Substance: CYCLOSPORINE
     Indication: Prophylaxis against graft versus host disease
     Dosage: 3 MG/KG/DIE FROM DAYS 0 TO 180
     Route: 065
  2. MYCOPHENOLIC ACID [Suspect]
     Active Substance: MYCOPHENOLIC ACID
     Indication: Prophylaxis against graft versus host disease
     Dosage: 15 MG/KG, BID FROM DAYS 1 TO 36
     Route: 065
  3. CYCLOPHOSPHAMIDE [Suspect]
     Active Substance: CYCLOPHOSPHAMIDE
     Indication: Prophylaxis against graft versus host disease
     Route: 065
  4. BUSULFAN [Suspect]
     Active Substance: BUSULFAN
     Indication: Allogenic stem cell transplantation
     Route: 065
  5. THIOTEPA [Suspect]
     Active Substance: THIOTEPA
     Indication: Allogenic stem cell transplantation
     Route: 065
  6. FLUDARABINE [Suspect]
     Active Substance: FLUDARABINE PHOSPHATE
     Indication: Allogenic stem cell transplantation
     Route: 065
  7. LAMIVUDINE [Suspect]
     Active Substance: LAMIVUDINE
     Indication: Prophylaxis
     Dosage: 100 MG, QD ON DAY MINUS 6/ 100 MG/DAY STARTED ON DAY -6
     Route: 065

REACTIONS (3)
  - Acute graft versus host disease in skin [Recovered/Resolved]
  - Hepatitis B reactivation [Unknown]
  - Product use in unapproved indication [Unknown]
